FAERS Safety Report 5816858-5 (Version None)
Quarter: 2008Q3

REPORT INFORMATION
  Report Type: 
  Country: None (occurrence: None)
  Receive Date: 20080721
  Receipt Date: 20080717
  Transmission Date: 20090109
  Serious: Yes (Other)
  Sender: FDA-Public Use
  Company Number: JP-MERCK-0806USA02669

PATIENT
  Age: 67 Year
  Sex: Male

DRUGS (3)
  1. XALATAN [Suspect]
     Indication: GLAUCOMA
     Route: 047
  2. TIMOPTIC [Suspect]
     Indication: GLAUCOMA
     Route: 047
  3. HYALEIN [Suspect]
     Route: 047

REACTIONS (1)
  - CORNEAL DEPOSITS [None]
